FAERS Safety Report 11035505 (Version 2)
Quarter: 2015Q2

REPORT INFORMATION
  Report Type: Spontaneous
  Country: US (occurrence: US)
  Receive Date: 20150415
  Receipt Date: 20150525
  Transmission Date: 20150821
  Serious: No
  Sender: FDA-Public Use
  Company Number: US-JNJFOC-20150120427

PATIENT
  Age: 65 Year
  Sex: Female
  Weight: 81.19 kg

DRUGS (5)
  1. FUROSEMIDE. [Concomitant]
     Active Substance: FUROSEMIDE
     Route: 048
     Dates: start: 201412
  2. NITROFURANTOIN. [Concomitant]
     Active Substance: NITROFURANTOIN
     Indication: CYSTITIS
     Route: 048
     Dates: start: 201501
  3. XARELTO [Suspect]
     Active Substance: RIVAROXABAN
     Indication: HEART VALVE REPLACEMENT
     Route: 048
     Dates: start: 201412
  4. XARELTO [Suspect]
     Active Substance: RIVAROXABAN
     Indication: PNEUMONIA VIRAL
     Route: 048
     Dates: start: 201412
  5. POTASSIUM [Concomitant]
     Active Substance: POTASSIUM
     Indication: BLOOD POTASSIUM DECREASED
     Route: 048
     Dates: start: 201412

REACTIONS (3)
  - Fall [Recovered/Resolved]
  - Product use issue [Unknown]
  - Dizziness postural [Not Recovered/Not Resolved]

NARRATIVE: CASE EVENT DATE: 201412
